FAERS Safety Report 6283038-1 (Version None)
Quarter: 2009Q3

REPORT INFORMATION
  Report Type: 
  Country: None (occurrence: None)
  Receive Date: 20090724
  Receipt Date: 20090721
  Transmission Date: 20100115
  Serious: Yes (Other)
  Sender: FDA-Public Use
  Company Number: FR-BRISTOL-MYERS SQUIBB COMPANY-14712723

PATIENT
  Age: 72 Year
  Sex: Male

DRUGS (2)
  1. PRAVADUAL TABS 81 MG/40 MG [Suspect]
     Dosage: 1DF=PRAVASTATIN SODIUM 40MG + ACETYLSALICYLIC ACID 81MG
  2. PLAVIX [Suspect]
     Route: 048

REACTIONS (3)
  - ANAEMIA [None]
  - COLON NEOPLASM [None]
  - GASTROINTESTINAL HAEMORRHAGE [None]
